FAERS Safety Report 7425978-3 (Version None)
Quarter: 2011Q2

REPORT INFORMATION
  Report Type: 
  Country: None (occurrence: None)
  Receive Date: 20110420
  Receipt Date: 20110414
  Transmission Date: 20111010
  Serious: Yes (Death)
  Sender: FDA-Public Use
  Company Number: CN-ROCHE-771320

PATIENT
  Sex: Male

DRUGS (3)
  1. RAPAMYCIN [Suspect]
     Indication: RENAL TRANSPLANT
     Dosage: MANUFACTURER:AMERICAN WYETH.
     Route: 048
  2. MYCOPHENOLATE MOFETIL [Suspect]
     Indication: RENAL TRANSPLANT
     Route: 048
     Dates: start: 20040731
  3. SANDIMMUNE [Suspect]
     Indication: RENAL TRANSPLANT
     Dosage: MANUFACTURER:NOVARTIS.
     Route: 048

REACTIONS (1)
  - LUNG NEOPLASM MALIGNANT [None]
